FAERS Safety Report 19477884 (Version 1)
Quarter: 2021Q2

REPORT INFORMATION
  Report Type: Spontaneous
  Country: US (occurrence: US)
  Receive Date: 20210630
  Receipt Date: 20210630
  Transmission Date: 20210717
  Serious: No
  Sender: FDA-Public Use
  Company Number: US-NEOS THERAPEUTICS, LP-2021NEO00011

PATIENT

DRUGS (1)
  1. COTEMPLA XR?ODT [Suspect]
     Active Substance: METHYLPHENIDATE

REACTIONS (1)
  - Abdominal pain upper [Unknown]
